FAERS Safety Report 12453261 (Version 1)
Quarter: 2016Q2

REPORT INFORMATION
  Report Type: Spontaneous
  Country: JP (occurrence: JP)
  Receive Date: 20160609
  Receipt Date: 20160609
  Transmission Date: 20160815
  Serious: Yes (Hospitalization)
  Sender: FDA-Public Use
  Company Number: JP-TEVA-666917ISR

PATIENT
  Age: 61 Year
  Sex: Male

DRUGS (2)
  1. TS-1 [Suspect]
     Active Substance: GIMERACIL\OTERACIL\TEGAFUR
     Indication: GASTRIC CANCER
     Dosage: FOR 3 WEEKS, FOLLOWED BY 2 DRUG FREE WEEKS
     Route: 048
  2. CISPLATIN. [Suspect]
     Active Substance: CISPLATIN
     Indication: GASTRIC CANCER
     Dosage: ON DAY 8
     Route: 042

REACTIONS (4)
  - Decreased appetite [Unknown]
  - Hypercalcaemia of malignancy [Recovered/Resolved]
  - Nausea [Unknown]
  - Fatigue [Unknown]
